FAERS Safety Report 12980024 (Version 1)
Quarter: 2016Q4

REPORT INFORMATION
  Report Type: Report from Study
  Country: AU (occurrence: AU)
  Receive Date: 20161128
  Receipt Date: 20161128
  Transmission Date: 20170207
  Serious: Yes (Other)
  Sender: FDA-Public Use
  Company Number: AU-REGENERON PHARMACEUTICALS, INC.-2016-24301

PATIENT

DRUGS (4)
  1. LUCENTIS [Concomitant]
     Active Substance: RANIBIZUMAB
     Indication: NEOVASCULAR AGE-RELATED MACULAR DEGENERATION
     Dosage: RIGHT EYE
  2. EYLEA [Suspect]
     Active Substance: AFLIBERCEPT
     Dosage: 2 MG, 8 WEEKS, LEFT EYE
     Route: 031
  3. EYLEA [Suspect]
     Active Substance: AFLIBERCEPT
     Dosage: 2 MG, 6 WEEKS, LEFT EYE. LAST INJECTION ADMINISTERED
     Route: 031
     Dates: start: 20161111, end: 20161111
  4. EYLEA [Suspect]
     Active Substance: AFLIBERCEPT
     Indication: NEOVASCULAR AGE-RELATED MACULAR DEGENERATION
     Dosage: 2 MG, 10-12 WEEKLY, LEFT EYE
     Route: 031
     Dates: start: 20151125

REACTIONS (3)
  - Dry eye [Unknown]
  - Eye haemorrhage [Unknown]
  - Product use issue [Unknown]
